FAERS Safety Report 4886007-9 (Version None)
Quarter: 2006Q1

REPORT INFORMATION
  Report Type: 
  Country: None (occurrence: None)
  Receive Date: 20060117
  Receipt Date: 20060104
  Transmission Date: 20060701
  Serious: Yes (Death)
  Sender: FDA-Public Use
  Company Number: MSER20060001

PATIENT
  Age: 29 Year
  Sex: Female

DRUGS (3)
  1. MORPHINE [Suspect]
     Indication: HEADACHE
     Dosage: 30 MG 2 DOSES PO
     Route: 048
     Dates: start: 20040101, end: 20040101
  2. ANTIBIOTICS [Concomitant]
  3. ANTIEMETIC [Concomitant]

REACTIONS (1)
  - SUDDEN CARDIAC DEATH [None]
